FAERS Safety Report 18398687 (Version 1)
Quarter: 2020Q4

REPORT INFORMATION
  Report Type: Spontaneous
  Country: US (occurrence: US)
  Receive Date: 20201019
  Receipt Date: 20201019
  Transmission Date: 20210114
  Serious: Yes (Hospitalization)
  Sender: FDA-Public Use
  Company Number: None

PATIENT
  Age: 62 Year
  Sex: Male
  Weight: 72.3 kg

DRUGS (2)
  1. CYTARABINE. [Suspect]
     Active Substance: CYTARABINE
     Dates: end: 20201001
  2. DAUNORUBICIN [Suspect]
     Active Substance: DAUNORUBICIN
     Dates: end: 20200927

REACTIONS (20)
  - Anion gap increased [None]
  - Transaminases increased [None]
  - Alanine aminotransferase increased [None]
  - Pyrexia [None]
  - Bacterial infection [None]
  - Septic shock [None]
  - Infection [None]
  - Aspartate aminotransferase increased [None]
  - Sinus tachycardia [None]
  - Pain [None]
  - Swelling [None]
  - Pulmonary mass [None]
  - Blood lactic acid increased [None]
  - Renal impairment [None]
  - Acute kidney injury [None]
  - Ejection fraction decreased [None]
  - Rash [None]
  - Pneumonia fungal [None]
  - Liver function test increased [None]
  - Bone marrow myelogram abnormal [None]

NARRATIVE: CASE EVENT DATE: 20200928
